FAERS Safety Report 16499578 (Version 1)
Quarter: 2019Q2

REPORT INFORMATION
  Report Type: Spontaneous
  Country: US (occurrence: US)
  Receive Date: 20190520
  Receipt Date: 20190520
  Transmission Date: 20190711
  Serious: Yes (Hospitalization)
  Sender: FDA-Public Use
  Company Number: None

PATIENT
  Age: 58 Year
  Sex: Female
  Weight: 102.06 kg

DRUGS (7)
  1. RANITIDINE. [Concomitant]
     Active Substance: RANITIDINE
  2. VITAMIN C [Concomitant]
     Active Substance: ASCORBIC ACID
  3. OCVITE ADULT SOT [Concomitant]
  4. 30 LOSARTAN POT 50 MG [Suspect]
     Active Substance: LOSARTAN POTASSIUM
     Indication: HYPERTENSION
     Dosage: ?          QUANTITY:50 MG MILLIGRAM(S);?
     Route: 048
     Dates: start: 20101212, end: 20190419
  5. 50 PLUS WOMENS ULTRA MEGA DIETARY SUPPLEMENT [Concomitant]
  6. ASPIRIN. [Concomitant]
     Active Substance: ASPIRIN
  7. VITAMIN D [Concomitant]
     Active Substance: VITAMIN D NOS

REACTIONS (7)
  - Haematoma [None]
  - Pain of skin [None]
  - Poor quality product administered [None]
  - Vulval abscess [None]
  - Abscess [None]
  - Product contamination chemical [None]
  - Product quality issue [None]
